FAERS Safety Report 15752590 (Version 5)
Quarter: 2019Q1

REPORT INFORMATION
  Report Type: Report from Study
  Country: DE (occurrence: DE)
  Receive Date: 20181221
  Receipt Date: 20190329
  Transmission Date: 20190417
  Serious: Yes (Death, Life-Threatening)
  Sender: FDA-Public Use
  Company Number: DE-PORTOLA PHARMACEUTICALS, INC.-2018DE000117

PATIENT
  Age: 94 Year
  Sex: Female

DRUGS (11)
  1. TORASEMID [Concomitant]
     Active Substance: TORSEMIDE
     Indication: DIURETIC THERAPY
     Dosage: 30 MG, BID
     Dates: start: 20181127, end: 20181219
  2. ANDEXXA [Suspect]
     Active Substance: ANDEXANET ALFA
     Dosage: 480 MG; 4 MCG/MIN, INFUSION
     Route: 042
     Dates: start: 20181219, end: 20181219
  3. APIXABAN [Concomitant]
     Active Substance: APIXABAN
     Indication: ATRIAL FIBRILLATION
     Dosage: 2.5 MG, BID
     Route: 048
     Dates: end: 20181219
  4. ATORVASTATIN [Concomitant]
     Active Substance: ATORVASTATIN
     Indication: HYPERCHOLESTEROLAEMIA
     Dosage: 20 MG, QD
     Dates: start: 20180430, end: 20181218
  5. BISOPROLOL [Concomitant]
     Active Substance: BISOPROLOL
     Indication: HYPERTENSION
     Dosage: 1.25 MG, QD
     Dates: start: 20180720, end: 20181219
  6. CITALOPRAM [Concomitant]
     Active Substance: CITALOPRAM HYDROBROMIDE
     Indication: ANTIDEPRESSANT THERAPY
     Dosage: 20 MG, QD
  7. ANDEXXA [Suspect]
     Active Substance: ANDEXANET ALFA
     Indication: PROCOAGULANT THERAPY
     Dosage: 400 MG, BOLUS
     Route: 040
     Dates: start: 20181219, end: 20181219
  8. LEVOTHYROXINE. [Concomitant]
     Active Substance: LEVOTHYROXINE
  9. VITAMIN B12 [Concomitant]
     Active Substance: CYANOCOBALAMIN
  10. VALSARTAN. [Concomitant]
     Active Substance: VALSARTAN
     Indication: HYPERTENSION
     Dosage: 80 MG, QD
     Dates: start: 20181012, end: 20181219
  11. METAMIZOL                          /06276701/ [Concomitant]
     Active Substance: METAMIZOLE

REACTIONS (3)
  - Bradycardia [Recovered/Resolved]
  - Cardiac arrest [Fatal]
  - Hypotension [Not Recovered/Not Resolved]

NARRATIVE: CASE EVENT DATE: 20181219
